FAERS Safety Report 16411229 (Version 2)
Quarter: 2019Q4

REPORT INFORMATION
  Report Type: Spontaneous
  Country: FR (occurrence: FR)
  Receive Date: 20190610
  Receipt Date: 20191114
  Transmission Date: 20200122
  Serious: Yes (Other)
  Sender: FDA-Public Use
  Company Number: FR-MYLANLABS-2019M1054333

PATIENT
  Age: 77 Year
  Sex: Female

DRUGS (2)
  1. TRAMADOL MYLAN [Suspect]
     Active Substance: TRAMADOL
     Indication: BACK PAIN
     Dosage: UNK
     Route: 065
  2. SEROPLEX [Concomitant]
     Active Substance: ESCITALOPRAM OXALATE
     Indication: DEPRESSION
     Dosage: 20 MILLIGRAM
     Dates: start: 201512

REACTIONS (3)
  - Chills [Unknown]
  - Withdrawal syndrome [Unknown]
  - Drug dependence [Unknown]
